FAERS Safety Report 19735452 (Version 1)
Quarter: 2021Q3

REPORT INFORMATION
  Report Type: Spontaneous
  Country: CA (occurrence: CA)
  Receive Date: 20210823
  Receipt Date: 20210823
  Transmission Date: 20211014
  Serious: Yes (Other)
  Sender: FDA-Public Use
  Company Number: CA-PFIZER INC-2020263116

PATIENT
  Age: 68 Year
  Sex: Female

DRUGS (5)
  1. XELJANZ [Suspect]
     Active Substance: TOFACITINIB CITRATE
     Indication: PSORIATIC ARTHROPATHY
     Dosage: 5 MG, 2X/DAY
     Route: 048
     Dates: start: 20200629, end: 20201227
  2. CANNABIS [Interacting]
     Active Substance: CANNABIS SATIVA SUBSP. INDICA TOP
     Dosage: UNK (OIL WITH CBD 25MG/THC 5MG)
     Dates: start: 20201211, end: 20201225
  3. METHOTREXATE. [Concomitant]
     Active Substance: METHOTREXATE
     Dosage: 25 MG, WEEKLY
     Route: 048
     Dates: start: 2013
  4. XELJANZ [Interacting]
     Active Substance: TOFACITINIB CITRATE
     Dosage: 5 MG, 2X/DAY
     Route: 048
     Dates: start: 20210204
  5. ROSUVASTATIN. [Concomitant]
     Active Substance: ROSUVASTATIN
     Indication: BLOOD CHOLESTEROL
     Dosage: UNK
     Route: 065
     Dates: start: 20200915

REACTIONS (21)
  - Peripheral swelling [Not Recovered/Not Resolved]
  - Arthralgia [Unknown]
  - Eye haemorrhage [Unknown]
  - Pyrexia [Unknown]
  - Balance disorder [Unknown]
  - Hypersomnia [Not Recovered/Not Resolved]
  - Osteoarthritis [Unknown]
  - Weight decreased [Unknown]
  - Muscular weakness [Unknown]
  - Condition aggravated [Unknown]
  - Pain in extremity [Unknown]
  - Stomatitis [Unknown]
  - Blood pressure systolic increased [Unknown]
  - Fall [Unknown]
  - Asthenopia [Unknown]
  - Blood pressure increased [Unknown]
  - Fatigue [Not Recovered/Not Resolved]
  - Potentiating drug interaction [Unknown]
  - Loss of personal independence in daily activities [Unknown]
  - Dizziness [Unknown]
  - Pain [Not Recovered/Not Resolved]

NARRATIVE: CASE EVENT DATE: 2020
